FAERS Safety Report 5709369-9 (Version None)
Quarter: 2008Q2

REPORT INFORMATION
  Report Type: 
  Country: None (occurrence: None)
  Receive Date: 20080418
  Receipt Date: 20080415
  Transmission Date: 20081010
  Serious: Yes (Hospitalization)
  Sender: FDA-Public Use
  Company Number: FR-BRISTOL-MYERS SQUIBB COMPANY-14085203

PATIENT
  Age: 32 Year
  Sex: Female

DRUGS (8)
  1. AMIKACIN [Suspect]
     Indication: TUBERCULOSIS
     Dates: start: 20071217, end: 20071228
  2. RIMIFON [Suspect]
     Indication: TUBERCULOSIS
     Route: 048
     Dates: start: 20071217, end: 20071229
  3. RIFADIN [Suspect]
     Indication: TUBERCULOSIS
     Route: 048
     Dates: start: 20071217, end: 20071229
  4. MYCOSTATIN [Concomitant]
     Indication: CANDIDIASIS
     Route: 048
     Dates: start: 20071211, end: 20071231
  5. MYAMBUTOL [Concomitant]
     Indication: TUBERCULOSIS
     Dosage: REINTRODUCED ON 21-JAN-2008
     Route: 048
     Dates: start: 20071221, end: 20071229
  6. WELLVONE [Concomitant]
     Indication: PNEUMOCYSTIS JIROVECI PNEUMONIA
     Route: 048
     Dates: start: 20071206, end: 20071231
  7. LEXOMIL [Concomitant]
     Indication: ANXIETY
     Route: 048
     Dates: start: 20071125, end: 20071228
  8. IMOVANE [Concomitant]
     Indication: INSOMNIA
     Route: 048
     Dates: start: 20071212, end: 20071231

REACTIONS (6)
  - DRUG RASH WITH EOSINOPHILIA AND SYSTEMIC SYMPTOMS [None]
  - ENANTHEMA [None]
  - FACE OEDEMA [None]
  - LYMPHADENOPATHY [None]
  - PYREXIA [None]
  - RASH MACULO-PAPULAR [None]
